FAERS Safety Report 7970482-7 (Version None)
Quarter: 2011Q4

REPORT INFORMATION
  Report Type: 
  Country: None (occurrence: None)
  Receive Date: 20111212
  Receipt Date: 20111206
  Transmission Date: 20120403
  Serious: Yes (Other)
  Sender: FDA-Public Use
  Company Number: ZA-SANOFI-AVENTIS-2011SA080186

PATIENT

DRUGS (2)
  1. KETEK [Suspect]
     Route: 065
  2. METFORMIN HCL [Suspect]
     Route: 065

REACTIONS (2)
  - LACTIC ACIDOSIS [None]
  - DRUG INTERACTION [None]
